FAERS Safety Report 6818605-7 (Version None)
Quarter: 2010Q3

REPORT INFORMATION
  Report Type: 
  Country: None (occurrence: None)
  Receive Date: 20100706
  Receipt Date: 20081103
  Transmission Date: 20110219
  Serious: No
  Sender: FDA-Public Use
  Company Number: US-PFIZER INC-2008093498

PATIENT
  Age: 51 Year
  Sex: Female

DRUGS (9)
  1. ZITHROMAX [Suspect]
     Indication: UPPER RESPIRATORY TRACT INFECTION
     Dosage: UNK
  2. CELEBREX [Suspect]
     Indication: INFLAMMATION
     Dosage: UNK, 1TAB/DAY
     Route: 048
     Dates: start: 20080601
  3. OXYCET [Suspect]
     Indication: PAIN
     Dosage: UNK
     Route: 048
     Dates: start: 20081021
  4. METHYLEPHEDRINE HYDROCHLORIDE-DL [Suspect]
     Indication: DISTURBANCE IN ATTENTION
     Dosage: UNK, 1 TABLET/DAY
     Route: 048
     Dates: start: 20080901
  5. PROZAC [Suspect]
     Indication: DEPRESSION
     Dosage: UNK, 1 TABLET/DAY
     Route: 048
  6. SEROQUEL [Suspect]
     Indication: INSOMNIA
     Dosage: UNK, 3 TABLETS/DAY
     Route: 048
     Dates: start: 20080501
  7. MACROBID [Suspect]
     Indication: CYSTITIS
     Dosage: UNK
  8. KLONOPIN [Concomitant]
     Dosage: UNK
  9. LEVOTHYROXINE [Concomitant]
     Dosage: UNK

REACTIONS (1)
  - DRUG SCREEN NEGATIVE [None]
